FAERS Safety Report 10791825 (Version 1)
Quarter: 2015Q1

REPORT INFORMATION
  Report Type: Spontaneous
  Country: CZ (occurrence: CZ)
  Receive Date: 20150213
  Receipt Date: 20150213
  Transmission Date: 20150721
  Serious: Yes (Hospitalization)
  Sender: FDA-Public Use
  Company Number: CZ-ROCHE-1536708

PATIENT
  Age: 60 Year
  Sex: Female
  Weight: 75 kg

DRUGS (9)
  1. LYRICA [Concomitant]
     Active Substance: PREGABALIN
     Route: 048
  2. ZOLSANA [Concomitant]
     Route: 048
  3. UBRETID [Concomitant]
     Active Substance: DISTIGMINE BROMIDE
     Route: 048
  4. BONVIVA [Suspect]
     Active Substance: IBANDRONATE SODIUM
     Indication: OSTEOPOROSIS
     Route: 048
     Dates: start: 20150107, end: 20150107
  5. CIPRALEX [Concomitant]
     Active Substance: ESCITALOPRAM OXALATE
     Route: 048
  6. XANAX [Concomitant]
     Active Substance: ALPRAZOLAM
     Route: 048
  7. PENTASA [Concomitant]
     Active Substance: MESALAMINE
     Route: 048
  8. PREDNISON [Concomitant]
     Active Substance: PREDNISONE
     Indication: MYASTHENIA GRAVIS
     Route: 048
  9. TRITTICO [Concomitant]
     Active Substance: TRAZODONE HYDROCHLORIDE
     Route: 048

REACTIONS (2)
  - Disorientation [Recovered/Resolved]
  - Influenza like illness [Recovered/Resolved]

NARRATIVE: CASE EVENT DATE: 20150107
